FAERS Safety Report 6444800-5 (Version None)
Quarter: 2009Q4

REPORT INFORMATION
  Report Type: 
  Country: None (occurrence: None)
  Receive Date: 20091118
  Receipt Date: 20091105
  Transmission Date: 20100525
  Serious: Yes (Other)
  Sender: FDA-Public Use
  Company Number: PHHY2009BR48532

PATIENT
  Age: 85 Year
  Sex: Male
  Weight: 90 kg

DRUGS (4)
  1. EXELON [Suspect]
     Indication: DEMENTIA
     Dosage: 1 PATCH (9 MG/5CM2) EVERY 24 HOURS
     Route: 062
  2. DIOVAN [Suspect]
     Indication: HYPERTENSION
     Dosage: UNK
  3. ISKEMIL [Concomitant]
     Dosage: 1 TABLET PER DAY
  4. PAROXETINE HYDROCHLORIDE [Concomitant]
     Dosage: 1 TABLET PER DAY

REACTIONS (3)
  - NOCTURIA [None]
  - SOMNOLENCE [None]
  - URINARY INCONTINENCE [None]
